FAERS Safety Report 15762084 (Version 6)
Quarter: 2019Q4

REPORT INFORMATION
  Report Type: Spontaneous
  Country: US (occurrence: US)
  Receive Date: 20181226
  Receipt Date: 20191216
  Transmission Date: 20200122
  Serious: No
  Sender: FDA-Public Use
  Company Number: US-PFIZER INC-2018525653

PATIENT
  Age: 55 Year
  Sex: Female

DRUGS (16)
  1. DOCETAXEL. [Suspect]
     Active Substance: DOCETAXEL
     Indication: BREAST CANCER FEMALE
     Dosage: 130 MG, CYCLIC, (EVERY THREE WEEKS, 02 CYCLES)
     Dates: start: 20110831, end: 2011
  2. DOCETAXEL ACCORD [Suspect]
     Active Substance: DOCETAXEL
     Dosage: 75 MG, CYCLIC, (EVERY THREE WEEKS, 02 CYCLES)
     Dates: start: 2011, end: 20111115
  3. DOCETAXEL SANOFI [Suspect]
     Active Substance: DOCETAXEL
     Indication: BREAST CANCER FEMALE
     Dosage: 130 MG, CYCLIC (EVERY THREE WEEKS, 02 CYCLES)
     Dates: start: 20110831, end: 2011
  4. DOCETAXEL SANDOZ [Suspect]
     Active Substance: DOCETAXEL
     Dosage: 75 MG, CYCLIC (EVERY THREE WEEKS, 02 CYCLES)
     Dates: start: 2011, end: 20111115
  5. DOCETAXEL ACTAVIS [Suspect]
     Active Substance: DOCETAXEL
     Dosage: 75 MG, CYCLIC (EVERY THREE WEEKS, 02 CYCLES)
     Dates: start: 2011, end: 20111115
  6. DOCETAXEL. [Suspect]
     Active Substance: DOCETAXEL
     Indication: BREAST CANCER FEMALE
     Dosage: 130 MG, CYCLIC (EVERY THREE WEEKS, 02 CYCLES)
     Dates: start: 20110831, end: 2011
  7. DOCETAXEL. [Suspect]
     Active Substance: DOCETAXEL
     Dosage: 75 MG, CYCLIC (EVERY THREE WEEKS, 02 CYCLES)
     Dates: start: 2011, end: 20111115
  8. DOCETAXEL MCKESSON [Suspect]
     Active Substance: DOCETAXEL
     Indication: BREAST CANCER FEMALE
     Dosage: 130 MG, CYCLIC (EVERY THREE WEEKS, 02 CYCLES)
     Dates: start: 20110831, end: 2011
  9. DOCETAXEL ACTAVIS [Suspect]
     Active Substance: DOCETAXEL
     Indication: BREAST CANCER FEMALE
     Dosage: 130 MG, CYCLIC (EVERY THREE WEEKS, 02 CYCLES)
     Dates: start: 20110831, end: 2011
  10. DOCETAXEL SANOFI [Suspect]
     Active Substance: DOCETAXEL
     Dosage: 75 MG, CYCLIC (EVERY THREE WEEKS, 02 CYCLES)
     Dates: start: 2011, end: 20111115
  11. DOCETAXEL SANDOZ [Suspect]
     Active Substance: DOCETAXEL
     Indication: BREAST CANCER FEMALE
     Dosage: 130 MG, CYCLIC (EVERY THREE WEEKS, 02 CYCLES)
     Dates: start: 20110831, end: 2011
  12. NEOSAR [Concomitant]
     Active Substance: CYCLOPHOSPHAMIDE
     Indication: CHEMOTHERAPY
     Dosage: UNK
  13. ARMOUR THYROID [Concomitant]
     Active Substance: THYROID, PORCINE
     Dosage: UNK
     Dates: start: 2005
  14. DOCETAXEL. [Suspect]
     Active Substance: DOCETAXEL
     Dosage: 75 MG, CYCLIC (EVERY THREE WEEKS, 02 CYCLES)
     Dates: start: 2011, end: 20111115
  15. DOCETAXEL MCKESSON [Suspect]
     Active Substance: DOCETAXEL
     Dosage: 75 MG, CYCLIC (EVERY THREE WEEKS, 02 CYCLES)
     Dates: start: 2011, end: 20111115
  16. DOCETAXEL ACCORD [Suspect]
     Active Substance: DOCETAXEL
     Indication: BREAST CANCER FEMALE
     Dosage: 130 MG, CYCLIC (EVERY THREE WEEKS, 02 CYCLES)
     Dates: start: 20110831, end: 2011

REACTIONS (5)
  - Hair disorder [Not Recovered/Not Resolved]
  - Hair texture abnormal [Not Recovered/Not Resolved]
  - Madarosis [Not Recovered/Not Resolved]
  - Alopecia [Not Recovered/Not Resolved]
  - Hair colour changes [Not Recovered/Not Resolved]

NARRATIVE: CASE EVENT DATE: 20110909
